FAERS Safety Report 4360375-9 (Version None)
Quarter: 2004Q2

REPORT INFORMATION
  Report Type: 
  Country: None (occurrence: None)
  Receive Date: 20040519
  Receipt Date: 20040514
  Transmission Date: 20050107
  Serious: Yes (Hospitalization)
  Sender: FDA-Public Use
  Company Number: FR-MERCK-0405FRA00051

PATIENT
  Age: 79 Year
  Sex: Female

DRUGS (6)
  1. ASPIRIN [Concomitant]
     Route: 048
     Dates: start: 19990101, end: 20031101
  2. ASPIRIN [Concomitant]
     Route: 048
     Dates: start: 20040301
  3. ATENOLOL AND NIFEDIPINE [Suspect]
     Indication: HYPERTENSION
     Route: 048
     Dates: start: 19980101
  4. INFLIXIMAB [Suspect]
     Indication: RHEUMATOID ARTHRITIS
     Route: 042
     Dates: start: 20011201, end: 20040120
  5. PREDNISONE [Suspect]
     Indication: RHEUMATOID ARTHRITIS
     Route: 048
     Dates: start: 19910101
  6. ZOCOR [Suspect]
     Indication: HYPERCHOLESTEROLAEMIA
     Route: 048
     Dates: start: 20040201

REACTIONS (4)
  - HYPERCHOLESTEROLAEMIA [None]
  - HYPERTENSION [None]
  - ISCHAEMIC STROKE [None]
  - TRANSIENT ISCHAEMIC ATTACK [None]
